FAERS Safety Report 9422428 (Version 2)
Quarter: 2014Q3

REPORT INFORMATION
  Report Type: Spontaneous
  Country: US (occurrence: US)
  Receive Date: 20130726
  Receipt Date: 20140818
  Transmission Date: 20150326
  Serious: Yes (Hospitalization, Other)
  Sender: FDA-Public Use
  Company Number: US-009507513-1307USA014454

PATIENT
  Sex: Female

DRUGS (1)
  1. NUVARING [Suspect]
     Active Substance: ETHINYL ESTRADIOL\ETONOGESTREL
     Indication: PRODUCT USED FOR UNKNOWN INDICATION
     Dosage: UNK
     Route: 067
     Dates: start: 200810, end: 20120731

REACTIONS (5)
  - Dizziness [Unknown]
  - Back pain [Unknown]
  - Upper respiratory tract infection [Unknown]
  - Pulmonary embolism [Unknown]
  - Cardiac murmur [Unknown]

NARRATIVE: CASE EVENT DATE: 20120325
